FAERS Safety Report 4489190-2 (Version None)
Quarter: 2004Q4

REPORT INFORMATION
  Report Type: 
  Country: None (occurrence: None)
  Receive Date: 20041029
  Receipt Date: 20041018
  Transmission Date: 20050328
  Serious: Yes (Death)
  Sender: FDA-Public Use
  Company Number: JP-JNJFOC-20041006494

PATIENT
  Sex: Male

DRUGS (14)
  1. DUROTEP [Suspect]
     Route: 062
  2. DUROTEP [Suspect]
     Indication: CANCER PAIN
     Route: 062
  3. BIAPENEM [Suspect]
     Indication: PNEUMONIA
     Route: 051
  4. MEROPENEM TRIHYDRATE [Suspect]
     Indication: PNEUMONIA
     Route: 051
  5. PHENYTOIN [Concomitant]
     Indication: CONVULSION
     Route: 049
  6. DICLOFENAC SODIUM [Concomitant]
     Indication: CANCER PAIN
     Route: 051
  7. LOXOPROFEN SODIUM [Concomitant]
     Indication: CANCER PAIN
     Route: 049
  8. TROXIPIDE [Concomitant]
     Indication: GASTRITIS
     Route: 049
  9. PROCHLORPERAZINE MALEATE [Concomitant]
     Route: 049
  10. SENNOSIDE [Concomitant]
     Indication: CONSTIPATION
     Route: 049
  11. METOCLOPRAMIDE [Concomitant]
     Route: 042
  12. METOCLOPRAMIDE [Concomitant]
     Route: 051
  13. METHYLPHENIDATE HCL [Concomitant]
     Route: 049
  14. MORPHINE HYDROCHLORIDE [Concomitant]
     Indication: CANCER PAIN
     Route: 051

REACTIONS (7)
  - ASPARTATE AMINOTRANSFERASE INCREASED [None]
  - EATING DISORDER [None]
  - HEMIPLEGIA [None]
  - MALIGNANT NEOPLASM PROGRESSION [None]
  - METASTASES TO ADRENALS [None]
  - METASTASES TO LUNG [None]
  - RESPIRATORY FAILURE [None]
